FAERS Safety Report 17611660 (Version 1)
Quarter: 2020Q2

REPORT INFORMATION
  Report Type: Spontaneous
  Country: IT (occurrence: IT)
  Receive Date: 20200401
  Receipt Date: 20200401
  Transmission Date: 20200713
  Serious: Yes (Other)
  Sender: FDA-Public Use
  Company Number: IT-MYLANLABS-2020M1033925

PATIENT
  Age: 78 Year
  Sex: Male

DRUGS (4)
  1. SEQUACOR [Concomitant]
     Active Substance: BISOPROLOL
  2. ZAROXOLYN [Concomitant]
     Active Substance: METOLAZONE
  3. FONDAPARINUX [Suspect]
     Active Substance: FONDAPARINUX
     Indication: ANTICOAGULANT THERAPY
     Dosage: 1 DOSAGE FORM, QD
     Route: 058
     Dates: start: 20191001, end: 20200127
  4. LASIX [Concomitant]
     Active Substance: FUROSEMIDE

REACTIONS (2)
  - Haematoma [Recovering/Resolving]
  - Product use issue [Unknown]

NARRATIVE: CASE EVENT DATE: 20200127
